FAERS Safety Report 4942654-7 (Version None)
Quarter: 2006Q1

REPORT INFORMATION
  Report Type: 
  Country: None (occurrence: None)
  Receive Date: 20060308
  Receipt Date: 20060228
  Transmission Date: 20060701
  Serious: Yes (Other)
  Sender: FDA-Public Use
  Company Number: 200610198BVD

PATIENT
  Age: 63 Year
  Sex: Male

DRUGS (4)
  1. AVELOX [Suspect]
     Indication: LOWER RESPIRATORY TRACT INFECTION
     Dosage: 400 MG, TOTAL DAILY, ORAL
     Route: 048
     Dates: start: 20060207, end: 20060208
  2. DECORTIN [Concomitant]
  3. AERODUR [Concomitant]
  4. OXIS [Concomitant]

REACTIONS (5)
  - CARDIOVASCULAR DISORDER [None]
  - CONTUSION [None]
  - FALL [None]
  - LOSS OF CONSCIOUSNESS [None]
  - SYNCOPE [None]
